FAERS Safety Report 7321534-6 (Version None)
Quarter: 2011Q1

REPORT INFORMATION
  Report Type: 
  Country: None (occurrence: None)
  Receive Date: 20110228
  Receipt Date: 20100402
  Transmission Date: 20110831
  Serious: No
  Sender: FDA-Public Use
  Company Number: A0851494A

PATIENT
  Age: 33 Year
  Sex: Female

DRUGS (2)
  1. PROTONIX [Concomitant]
  2. VALTREX [Suspect]
     Indication: HERPES SIMPLEX
     Dosage: 1G THREE TIMES PER DAY
     Route: 048

REACTIONS (5)
  - ILL-DEFINED DISORDER [None]
  - VOMITING [None]
  - GASTROOESOPHAGITIS [None]
  - NAUSEA [None]
  - MALNUTRITION [None]
